FAERS Safety Report 6850392-9 (Version None)
Quarter: 2010Q3

REPORT INFORMATION
  Report Type: 
  Country: None (occurrence: None)
  Receive Date: 20100716
  Receipt Date: 20071222
  Transmission Date: 20110219
  Serious: Yes (Other)
  Sender: FDA-Public Use
  Company Number: US-PFIZER INC-2007087851

PATIENT
  Sex: Female
  Weight: 81.6 kg

DRUGS (8)
  1. CHANTIX [Suspect]
     Indication: SMOKING CESSATION THERAPY
     Dates: start: 20070714, end: 20071001
  2. WELLBUTRIN XL [Concomitant]
  3. LEXAPRO [Concomitant]
  4. TOPROL-XL [Concomitant]
  5. ULTRACET [Concomitant]
  6. CRESTOR [Concomitant]
  7. PLAVIX [Concomitant]
  8. DESYREL [Concomitant]

REACTIONS (1)
  - HALLUCINATION [None]
